FAERS Safety Report 5368359-9 (Version None)
Quarter: 2007Q2

REPORT INFORMATION
  Report Type: 
  Country: None (occurrence: None)
  Receive Date: 20070625
  Receipt Date: 20070612
  Transmission Date: 20071010
  Serious: Yes (Other)
  Sender: FDA-Public Use
  Company Number: ES-AMGEN-US230484

PATIENT
  Age: 50 Year
  Sex: Female

DRUGS (2)
  1. ENBREL [Suspect]
     Indication: PSORIASIS
     Route: 058
     Dates: start: 20060401
  2. ENBREL [Suspect]
     Dosage: NOT SPECIFIED
     Route: 065
     Dates: start: 20050101

REACTIONS (2)
  - RASH GENERALISED [None]
  - SKIN EXFOLIATION [None]
